FAERS Safety Report 24182075 (Version 1)
Quarter: 2024Q3

REPORT INFORMATION
  Report Type: Spontaneous
  Country: NL (occurrence: NL)
  Receive Date: 20240807
  Receipt Date: 20240807
  Transmission Date: 20241017
  Serious: Yes (Other)
  Sender: MEDEXUS PHARMA
  Company Number: NL-MEDEXUS PHARMA, INC.-2024MED00330

PATIENT
  Sex: Male

DRUGS (1)
  1. METHOTREXATE [Suspect]
     Active Substance: METHOTREXATE
     Indication: Dermatitis atopic
     Route: 048

REACTIONS (1)
  - Erectile dysfunction [Unknown]
